FAERS Safety Report 5675169-1 (Version None)
Quarter: 2008Q1

REPORT INFORMATION
  Report Type: 
  Country: None (occurrence: None)
  Receive Date: 20080320
  Receipt Date: 20080313
  Transmission Date: 20080703
  Serious: Yes (Other)
  Sender: FDA-Public Use
  Company Number: HQWYE884630JUN05

PATIENT
  Sex: Female

DRUGS (4)
  1. PREMPRO [Suspect]
  2. PROVERA [Suspect]
  3. CONJUGATED ESTROGENS [Suspect]
  4. ESTRACE [Suspect]

REACTIONS (1)
  - BREAST CANCER METASTATIC [None]
